FAERS Safety Report 6675284-X (Version None)
Quarter: 2010Q2

REPORT INFORMATION
  Report Type: 
  Country: None (occurrence: None)
  Receive Date: 20100409
  Receipt Date: 20100108
  Transmission Date: 20101027
  Serious: No
  Sender: FDA-Public Use
  Company Number: A0838512A

PATIENT
  Age: 39 Year
  Sex: Female

DRUGS (11)
  1. TYKERB [Suspect]
     Indication: BREAST CANCER
     Dosage: 5TAB PER DAY
     Route: 048
     Dates: start: 20091230
  2. CURCUMIN [Concomitant]
  3. COMPAZINE [Concomitant]
  4. MULTI-VITAMIN [Concomitant]
  5. CO Q10 [Concomitant]
  6. VITAMIN D [Concomitant]
  7. VITAMIN B6 [Concomitant]
  8. ZINC [Concomitant]
  9. MELATONIN [Concomitant]
  10. EPA MARINE LIPID CONCENTRATE [Concomitant]
  11. XELODA [Concomitant]

REACTIONS (2)
  - NAUSEA [None]
  - VOMITING [None]
